FAERS Safety Report 5675370-7 (Version None)
Quarter: 2008Q1

REPORT INFORMATION
  Report Type: 
  Country: None (occurrence: None)
  Receive Date: 20080320
  Receipt Date: 20080314
  Transmission Date: 20080703
  Serious: Yes (Other)
  Sender: FDA-Public Use
  Company Number: GB-BOEHRINGER INGELHEIM GMBH, GERMANY-2008-UK-00892UK

PATIENT
  Sex: Female

DRUGS (7)
  1. TIOTROPIUM (00015/0190/A) [Suspect]
     Route: 055
  2. ADALAT [Concomitant]
  3. ALFACALCIDOL [Concomitant]
  4. IRBESARTAN [Concomitant]
     Dosage: 1/1 DAYS
     Route: 048
  5. NEBIVOLOL HCL [Concomitant]
     Dosage: 1/1 DAYS
  6. PREDNISOLONE [Concomitant]
  7. SODIUM BICARBONATE [Concomitant]

REACTIONS (3)
  - AGEUSIA [None]
  - MOUTH ULCERATION [None]
  - SENSORY LOSS [None]
